FAERS Safety Report 14431151 (Version 2)
Quarter: 2018Q1

REPORT INFORMATION
  Report Type: Spontaneous
  Country: US (occurrence: US)
  Receive Date: 20180124
  Receipt Date: 20180222
  Transmission Date: 20180509
  Serious: Yes (Other)
  Sender: FDA-Public Use
  Company Number: US-WEST-WARD PHARMACEUTICALS CORP.-US-H14001-18-00340

PATIENT
  Age: 28 Year
  Sex: Male

DRUGS (19)
  1. CAPREOMYCIN [Concomitant]
     Active Substance: CAPREOMYCIN
     Indication: TUBERCULOSIS OF CENTRAL NERVOUS SYSTEM
     Route: 042
  2. LINEZOLID. [Concomitant]
     Active Substance: LINEZOLID
     Indication: TUBERCULOSIS OF CENTRAL NERVOUS SYSTEM
     Route: 048
  3. BEDAQUILINE [Concomitant]
     Active Substance: BEDAQUILINE
     Route: 048
  4. B6 [Concomitant]
     Active Substance: PYRIDOXINE HYDROCHLORIDE
     Indication: TUBERCULOSIS OF CENTRAL NERVOUS SYSTEM
     Route: 048
     Dates: end: 20160820
  5. DEXAMETHASONE. [Suspect]
     Active Substance: DEXAMETHASONE
     Indication: BRAIN OEDEMA
     Route: 048
     Dates: start: 201406
  6. BEDAQUILINE [Concomitant]
     Active Substance: BEDAQUILINE
     Route: 048
  7. AMOXICILLIN CLAVULANATE [Concomitant]
     Active Substance: AMOXICILLIN\CLAVULANIC ACID
     Indication: TUBERCULOSIS OF CENTRAL NERVOUS SYSTEM
     Route: 048
  8. AMOXICILLIN CLAVULANATE [Concomitant]
     Active Substance: AMOXICILLIN\CLAVULANIC ACID
     Route: 048
     Dates: end: 20160820
  9. MEROPENEM. [Concomitant]
     Active Substance: MEROPENEM
     Route: 042
     Dates: end: 20160820
  10. ISONIASID [Concomitant]
     Active Substance: ISONIAZID
     Indication: TUBERCULOSIS OF CENTRAL NERVOUS SYSTEM
     Route: 048
     Dates: end: 20160820
  11. PYRAZINAMIDE. [Concomitant]
     Active Substance: PYRAZINAMIDE
     Indication: TUBERCULOSIS OF CENTRAL NERVOUS SYSTEM
     Route: 048
     Dates: end: 20160820
  12. MEROPENEM. [Concomitant]
     Active Substance: MEROPENEM
     Indication: TUBERCULOSIS OF CENTRAL NERVOUS SYSTEM
     Route: 042
  13. DEXAMETHASONE. [Suspect]
     Active Substance: DEXAMETHASONE
     Route: 048
  14. LINEZOLID. [Concomitant]
     Active Substance: LINEZOLID
     Route: 048
     Dates: end: 20160820
  15. BEDAQUILINE [Concomitant]
     Active Substance: BEDAQUILINE
     Indication: TUBERCULOSIS OF CENTRAL NERVOUS SYSTEM
     Route: 048
  16. BEDAQUILINE [Concomitant]
     Active Substance: BEDAQUILINE
     Route: 048
     Dates: end: 20160820
  17. DEXAMETHASONE. [Suspect]
     Active Substance: DEXAMETHASONE
     Route: 048
  18. DEXAMETHASONE. [Suspect]
     Active Substance: DEXAMETHASONE
     Route: 048
  19. MOXIFLOXACIN. [Concomitant]
     Active Substance: MOXIFLOXACIN
     Indication: TUBERCULOSIS OF CENTRAL NERVOUS SYSTEM
     Route: 048
     Dates: end: 20160820

REACTIONS (10)
  - Toxicity to various agents [Unknown]
  - Leukocytosis [Unknown]
  - Weight increased [Unknown]
  - Immune reconstitution inflammatory syndrome [Unknown]
  - Condition aggravated [Unknown]
  - Paradoxical drug reaction [Unknown]
  - Fatigue [Unknown]
  - Osteonecrosis [Unknown]
  - General physical health deterioration [Unknown]
  - Brain oedema [Unknown]

NARRATIVE: CASE EVENT DATE: 2014
